FAERS Safety Report 5605190-0 (Version None)
Quarter: 2008Q1

REPORT INFORMATION
  Report Type: 
  Country: None (occurrence: None)
  Receive Date: 20080124
  Receipt Date: 20080107
  Transmission Date: 20080703
  Serious: Yes (Other)
  Sender: FDA-Public Use
  Company Number: 8029037

PATIENT

DRUGS (1)
  1. KEPPRA [Suspect]

REACTIONS (1)
  - BONE MARROW FAILURE [None]
